FAERS Safety Report 5856124-5 (Version None)
Quarter: 2008Q3

REPORT INFORMATION
  Report Type: 
  Country: None (occurrence: None)
  Receive Date: 20080821
  Receipt Date: 20080821
  Transmission Date: 20090109
  Serious: Yes (Hospitalization)
  Sender: FDA-Public Use
  Company Number: None

PATIENT
  Sex: Female
  Weight: 88 kg

DRUGS (6)
  1. TEMOZOLOMIDE [Suspect]
     Indication: ACUTE MYELOID LEUKAEMIA
     Dosage: QD PO
     Route: 048
  2. TOPROL-XL [Concomitant]
  3. POTASSIUM CHLORIDE [Concomitant]
  4. SYNTHROID [Concomitant]
  5. AMBIEN [Concomitant]
  6. OMEPRAZOLE [Concomitant]

REACTIONS (8)
  - ACUTE MYELOID LEUKAEMIA RECURRENT [None]
  - ANAEMIA [None]
  - CONDITION AGGRAVATED [None]
  - DEHYDRATION [None]
  - DIARRHOEA [None]
  - FEBRILE NEUTROPENIA [None]
  - LEUKOCYTOSIS [None]
  - THROMBOCYTOPENIA [None]
